FAERS Safety Report 9583011 (Version 1)
Quarter: 2013Q4

REPORT INFORMATION
  Report Type: Spontaneous
  Country: US (occurrence: US)
  Receive Date: 20131002
  Receipt Date: 20131002
  Transmission Date: 20140711
  Serious: No
  Sender: FDA-Public Use
  Company Number: US-AMGEN-USASP2013044892

PATIENT
  Age: 65 Year
  Sex: Female
  Weight: 63.95 kg

DRUGS (7)
  1. ENBREL [Suspect]
     Indication: PRODUCT USED FOR UNKNOWN INDICATION
     Dosage: 50 MG, EVERY WEEK
     Route: 065
  2. METHOTREXATE [Concomitant]
     Dosage: 2.5 MG, UNK
  3. FOLIC ACID [Concomitant]
     Dosage: UNK
  4. PREDNISONE [Concomitant]
     Dosage: 5 MG, UNK
  5. DIPHENHYDRAMIN [Concomitant]
     Dosage: 25 MG, UNK
  6. SINGULAIR [Concomitant]
     Dosage: 10 MG, UNK
  7. DEXILANT [Concomitant]
     Dosage: 30 MG DR, UNK

REACTIONS (3)
  - Arthralgia [Unknown]
  - Skin burning sensation [Unknown]
  - Malaise [Unknown]
